FAERS Safety Report 9470305 (Version 2)
Quarter: 2013Q3

REPORT INFORMATION
  Report Type: Spontaneous
  Country: US (occurrence: US)
  Receive Date: 20130822
  Receipt Date: 20130822
  Transmission Date: 20140515
  Serious: Yes (Hospitalization)
  Sender: FDA-Public Use
  Company Number: US-SANOFI-AVENTIS-2012SA068114

PATIENT
  Age: 70 Year
  Sex: Female
  Weight: 78.18 kg

DRUGS (6)
  1. MULTAQ [Suspect]
     Indication: ATRIAL FIBRILLATION
     Route: 048
     Dates: start: 20110629, end: 20120809
  2. MAXZIDE [Concomitant]
  3. CELLCEPT [Concomitant]
     Indication: PEMPHIGUS
  4. CRESTOR /UNK/ [Concomitant]
     Indication: HYPERCHOLESTEROLAEMIA
  5. SYNTHROID [Concomitant]
     Indication: HYPOTHYROIDISM
     Dates: start: 1961
  6. METOPROLOL [Concomitant]
     Indication: HYPERTENSION

REACTIONS (3)
  - Atrial fibrillation [Recovered/Resolved]
  - Dizziness [Unknown]
  - Drug ineffective [Unknown]
